FAERS Safety Report 13667181 (Version 1)
Quarter: 2017Q2

REPORT INFORMATION
  Report Type: Spontaneous
  Country: US (occurrence: US)
  Receive Date: 20170619
  Receipt Date: 20170619
  Transmission Date: 20170830
  Serious: No
  Sender: FDA-Public Use
  Company Number: US-SHIRE-US201713566

PATIENT
  Sex: Female

DRUGS (1)
  1. XIIDRA [Suspect]
     Active Substance: LIFITEGRAST
     Indication: PRODUCT USED FOR UNKNOWN INDICATION
     Dosage: UNK
     Dates: start: 201702

REACTIONS (6)
  - Nasal congestion [Unknown]
  - Instillation site reaction [Recovered/Resolved]
  - Irritability [Unknown]
  - Headache [Unknown]
  - Frustration tolerance decreased [Unknown]
  - Nasal discomfort [Unknown]
